FAERS Safety Report 8050892-2 (Version None)
Quarter: 2012Q1

REPORT INFORMATION
  Report Type: 
  Country: None (occurrence: None)
  Receive Date: 20120117
  Receipt Date: 20120109
  Transmission Date: 20120608
  Serious: Yes (Hospitalization)
  Sender: FDA-Public Use
  Company Number: PHHY2012CA002650

PATIENT
  Age: 60 Year
  Sex: Male

DRUGS (3)
  1. KEPPRA [Concomitant]
  2. GABAPENTIN [Concomitant]
  3. TASIGNA [Suspect]
     Route: 048

REACTIONS (2)
  - AMNESIA [None]
  - CONVULSION [None]
